FAERS Safety Report 15401392 (Version 1)
Quarter: 2018Q3

REPORT INFORMATION
  Report Type: Spontaneous
  Country: CN (occurrence: CN)
  Receive Date: 20180919
  Receipt Date: 20180919
  Transmission Date: 20181010
  Serious: Yes (Other)
  Sender: FDA-Public Use
  Company Number: CN-ALKEM LABORATORIES LIMITED-CN-ALKEM-2018-03953

PATIENT

DRUGS (7)
  1. CAPECITABINE. [Suspect]
     Active Substance: CAPECITABINE
     Dosage: 1000 MG/M2, ON DAYS 22?36 AND DAY 43?57, DURING THE COURSE OF RADIOTHERAPY
     Route: 048
  2. BEVACIZUMAB. [Suspect]
     Active Substance: BEVACIZUMAB
     Indication: CHEMOTHERAPY
     Dosage: 7.5 MG/KG, ON DAY 1, 3 WEEKS BEFORE CONCURRENT CHEMORADIATION
     Route: 042
  3. CAPECITABINE. [Suspect]
     Active Substance: CAPECITABINE
     Indication: CHEMOTHERAPY
     Dosage: 1000 MG/M2, BID ON DAYS 1?15 OF THE CYCLE, 3 WEEKS BEFORE CONCURRENT CHEMORADIATION
     Route: 048
  4. CAPECITABINE. [Suspect]
     Active Substance: CAPECITABINE
     Dosage: UNK, TWO CYCLES OF CAPECITABINE AFTER RECOVERY FROM SURGERY
     Route: 048
  5. OXALIPLATIN. [Suspect]
     Active Substance: OXALIPLATIN
     Dosage: 100 MG/M2, ON DAYS 22 AND 43, DURING THE COURSE OF RADIOTHERAPY
     Route: 042
  6. BEVACIZUMAB. [Suspect]
     Active Substance: BEVACIZUMAB
     Dosage: 7.5 MG/KG, ON DAYS 22 AND 43, DURING THE COURSE OF RADIOTHERAPY
     Route: 042
  7. OXALIPLATIN. [Suspect]
     Active Substance: OXALIPLATIN
     Indication: CHEMOTHERAPY
     Dosage: 130 MG/M2, ON DAY 1, 3 WEEKS BEFORE CONCURRENT CHEMORADIATION
     Route: 042

REACTIONS (1)
  - Radiation skin injury [Unknown]
